FAERS Safety Report 20182843 (Version 2)
Quarter: 2021Q4

REPORT INFORMATION
  Report Type: Report from Study
  Country: US (occurrence: US)
  Receive Date: 20211214
  Receipt Date: 20211217
  Transmission Date: 20220303
  Serious: Yes (Death)
  Sender: FDA-Public Use
  Company Number: US-EXELIXIS-XL18421046468

PATIENT
  Age: 71 Year
  Sex: Female
  Weight: 55.45 kg

DRUGS (2)
  1. CABOZANTINIB [Suspect]
     Active Substance: CABOZANTINIB
     Indication: Colon cancer
     Dosage: 40 MG, QD
     Route: 048
     Dates: start: 20211026, end: 20211120
  2. NIVOLUMAB [Suspect]
     Active Substance: NIVOLUMAB
     Indication: Colon cancer
     Dosage: 480 MG, Q4WEEKS (Q28 DAYS)
     Route: 042
     Dates: start: 20211026

REACTIONS (1)
  - Distributive shock [Fatal]

NARRATIVE: CASE EVENT DATE: 20211121
